FAERS Safety Report 7116171-2 (Version None)
Quarter: 2010Q4

REPORT INFORMATION
  Report Type: 
  Country: None (occurrence: None)
  Receive Date: 20101122
  Receipt Date: 20101111
  Transmission Date: 20110411
  Serious: Yes (Other)
  Sender: FDA-Public Use
  Company Number: PHHY2010BR64717

PATIENT
  Age: 85 Year
  Sex: Female

DRUGS (1)
  1. FORADIL [Suspect]
     Indication: ASTHMA
     Dosage: 2 DF, DAILY

REACTIONS (3)
  - DYSPNOEA [None]
  - HEARING IMPAIRED [None]
  - WRONG TECHNIQUE IN DRUG USAGE PROCESS [None]
